FAERS Safety Report 9660867 (Version 3)
Quarter: 2014Q1

REPORT INFORMATION
  Report Type: Spontaneous
  Country: FR (occurrence: FR)
  Receive Date: 20131031
  Receipt Date: 20140122
  Transmission Date: 20141002
  Serious: Yes (Hospitalization)
  Sender: FDA-Public Use
  Company Number: FR-PFIZER INC-2013309752

PATIENT
  Age: 83 Year
  Sex: Female

DRUGS (1)
  1. NEURONTIN [Suspect]
     Dosage: 300 MG, DAILY
     Dates: start: 201306

REACTIONS (2)
  - Pancreatic disorder [Unknown]
  - Gastrointestinal disorder [Unknown]
